FAERS Safety Report 16235278 (Version 1)
Quarter: 2019Q2

REPORT INFORMATION
  Report Type: Report from Study
  Country: ES (occurrence: ES)
  Receive Date: 20190424
  Receipt Date: 20190424
  Transmission Date: 20190711
  Serious: Yes (Other)
  Sender: FDA-Public Use
  Company Number: ES-PFIZER INC-2019165605

PATIENT
  Age: 54 Year
  Sex: Male

DRUGS (22)
  1. ZOLEDRONIC ACID [Suspect]
     Active Substance: ZOLEDRONIC ACID
     Indication: CANCER PAIN
     Dosage: 1 DF, UNK (1X/4 WEEKS)
     Route: 065
  2. FENTANYL. [Suspect]
     Active Substance: FENTANYL
     Dosage: 100 UNK, AS NEEDED
     Route: 045
  3. FENTANYL. [Suspect]
     Active Substance: FENTANYL
     Dosage: 400 UG, DAILY (400 UG (REQUIRING 2 DOSES DAILY ))
     Route: 045
  4. PREGABALIN. [Suspect]
     Active Substance: PREGABALIN
     Indication: CANCER PAIN
     Dosage: 1 DF, 2X/DAY  (12H, 150 UNK EVERY 12H)
     Route: 065
  5. OMEPRAZOLE. [Suspect]
     Active Substance: OMEPRAZOLE
     Indication: CANCER PAIN
     Dosage: UNK (20 / 24H)
     Route: 065
  6. FENTANYL. [Suspect]
     Active Substance: FENTANYL
     Indication: BREAKTHROUGH PAIN
     Dosage: UNKNOWN (BARELY NECESSARY)
     Route: 045
  7. FENTANYL. [Suspect]
     Active Substance: FENTANYL
     Dosage: 100 UG, EVERY 3 DAYS
     Route: 065
  8. PEMETREXED. [Concomitant]
     Active Substance: PEMETREXED
     Indication: LUNG ADENOCARCINOMA STAGE IV
  9. FENTANYL. [Suspect]
     Active Substance: FENTANYL
     Dosage: UNK UNK, 1X/DAY (2-3 DOSES EVERY 24 HOURS)
     Route: 045
  10. BACLOFEN. [Suspect]
     Active Substance: BACLOFEN
     Indication: CANCER PAIN
     Dosage: 10 MG, 2X/DAY (10 MG, EVERY 12H)
     Route: 065
  11. NAPROXEN. [Suspect]
     Active Substance: NAPROXEN
     Indication: CANCER PAIN
     Dosage: 1 DF, 2X/DAY (12H; 500 UNK, EVERY 12H)
     Route: 065
  12. PAROXETINE. [Concomitant]
     Active Substance: PAROXETINE
     Dosage: 20 MG, 1X/DAY (20 MG/NIGHT)
     Route: 065
  13. OXYCODONE [Suspect]
     Active Substance: OXYCODONE
     Indication: CANCER PAIN
     Dosage: 10 MG, 3X/DAY (10 MG, EVERY 8H)
     Route: 065
  14. FENTANYL. [Suspect]
     Active Substance: FENTANYL
     Indication: CANCER PAIN
     Dosage: 1 DF, UNK (75 UNK, EVERY 3 DAYS)
     Route: 062
  15. DEXAMETHASONE. [Concomitant]
     Active Substance: DEXAMETHASONE
     Dosage: UNKNOWN
     Route: 065
  16. MEGESTROL ACETATE. [Concomitant]
     Active Substance: MEGESTROL ACETATE
     Dosage: 160 MG, 3X/DAY (160 MG, EVERY 8H)
     Route: 065
  17. KETAMINE HCL [Suspect]
     Active Substance: KETAMINE HYDROCHLORIDE
     Indication: CANCER PAIN
     Dosage: UNKNOWN
     Route: 065
  18. FENTANYL. [Suspect]
     Active Substance: FENTANYL
     Dosage: 800 UG, UNK
     Route: 045
  19. DULOXETINE. [Suspect]
     Active Substance: DULOXETINE
     Indication: CANCER PAIN
     Dosage: 60 MG, 1X/DAY (60 MG / 24 H)
     Route: 065
  20. PEMETREXED. [Concomitant]
     Active Substance: PEMETREXED
     Indication: METASTASES TO BONE
     Dosage: UNKNOWN
     Route: 065
  21. CISPLATINE [Concomitant]
     Active Substance: CISPLATIN
     Indication: LUNG ADENOCARCINOMA STAGE IV
     Dosage: UNK
     Route: 016
  22. CISPLATINE [Concomitant]
     Active Substance: CISPLATIN
     Indication: METASTASES TO BONE
     Dosage: UNK

REACTIONS (16)
  - Sleep apnoea syndrome [Unknown]
  - Delirium [Unknown]
  - Urinary retention [Unknown]
  - Insomnia [Unknown]
  - Pulmonary embolism [Unknown]
  - Product use in unapproved indication [Unknown]
  - Dyspnoea [Unknown]
  - Anxiety [Unknown]
  - Decreased appetite [Recovering/Resolving]
  - Fatigue [Unknown]
  - Constipation [Unknown]
  - Cognitive disorder [Unknown]
  - Somnolence [Unknown]
  - Depression [Recovering/Resolving]
  - Vomiting [Unknown]
  - Dysphagia [Unknown]
